FAERS Safety Report 14531707 (Version 2)
Quarter: 2018Q3

REPORT INFORMATION
  Report Type: Report from Study
  Country: JP (occurrence: JP)
  Receive Date: 20180214
  Receipt Date: 20180718
  Transmission Date: 20181010
  Serious: Yes (Death, Other)
  Sender: FDA-Public Use
  Company Number: JP-TAKEDA-2018TUS003916

PATIENT
  Sex: Male
  Weight: 39 kg

DRUGS (7)
  1. ITRIZOLE [Concomitant]
     Active Substance: ITRACONAZOLE
     Indication: PROPHYLAXIS
     Dosage: UNK
     Route: 065
     Dates: end: 20171012
  2. FLORID                             /00310801/ [Concomitant]
     Active Substance: MICONAZOLE
     Indication: PROPHYLAXIS
     Dosage: UNK
     Route: 065
     Dates: start: 20171213, end: 20180105
  3. PONATINIB [Suspect]
     Active Substance: PONATINIB
     Indication: ACUTE LYMPHOCYTIC LEUKAEMIA
     Dosage: 45 MG, QD
     Route: 048
     Dates: start: 20180126, end: 20180203
  4. PONATINIB [Suspect]
     Active Substance: PONATINIB
     Dosage: 15 MG, QD
     Route: 048
     Dates: start: 20170914, end: 20171211
  5. BAYASPIRIN [Concomitant]
     Active Substance: ASPIRIN
     Indication: PRODUCT USED FOR UNKNOWN INDICATION
     Dosage: UNK
     Route: 065
     Dates: end: 20180130
  6. TICLOPIDINE HYDROCHLORIDE. [Concomitant]
     Active Substance: TICLOPIDINE HYDROCHLORIDE
     Indication: PRODUCT USED FOR UNKNOWN INDICATION
     Dosage: UNK
     Route: 065
     Dates: end: 20180130
  7. PONATINIB [Suspect]
     Active Substance: PONATINIB
     Dosage: 30 MG, QD
     Route: 048
     Dates: start: 20171212, end: 20180125

REACTIONS (1)
  - Acute lymphocytic leukaemia [Fatal]
